FAERS Safety Report 15555269 (Version 1)
Quarter: 2018Q4

REPORT INFORMATION
  Report Type: Report from Study
  Country: DE (occurrence: DE)
  Receive Date: 20181026
  Receipt Date: 20181026
  Transmission Date: 20190205
  Serious: Yes (Hospitalization)
  Sender: FDA-Public Use
  Company Number: DE-TEVA-2018-DE-966908

PATIENT
  Age: 55 Year
  Sex: Male
  Weight: 100 kg

DRUGS (15)
  1. FLUOROURACIL. [Suspect]
     Active Substance: FLUOROURACIL
     Indication: COLORECTAL CANCER METASTATIC
     Dosage: 4800 MG
     Route: 042
     Dates: start: 20180122
  2. PANITUMUMAB [Suspect]
     Active Substance: PANITUMUMAB
     Indication: COLORECTAL CANCER METASTATIC
     Dosage: 560 MG
     Route: 042
     Dates: start: 20180523
  3. PANITUMUMAB [Suspect]
     Active Substance: PANITUMUMAB
     Dosage: 560 MG
     Route: 042
     Dates: start: 20180711
  4. PANITUMUMAB [Suspect]
     Active Substance: PANITUMUMAB
     Dosage: 580 MG
     Route: 042
     Dates: start: 20180508
  5. PANITUMUMAB [Suspect]
     Active Substance: PANITUMUMAB
     Dosage: 560 MG
     Route: 042
     Dates: start: 20180226
  6. PANITUMUMAB [Suspect]
     Active Substance: PANITUMUMAB
     Dosage: 590 MG
     Route: 042
     Dates: start: 20180122
  7. PANITUMUMAB [Suspect]
     Active Substance: PANITUMUMAB
     Dosage: 570 MG
     Route: 042
     Dates: start: 20180326
  8. PANITUMUMAB [Suspect]
     Active Substance: PANITUMUMAB
     Dosage: 580 MG
     Route: 042
     Dates: start: 20180312
  9. PANTOZOL [Concomitant]
     Active Substance: PANTOPRAZOLE SODIUM
     Indication: ESSENTIAL HYPERTENSION
     Dosage: 40 MILLIGRAM DAILY;
     Route: 048
  10. FOLINIC ACID [Suspect]
     Active Substance: LEUCOVORIN
     Indication: COLORECTAL CANCER METASTATIC
     Dosage: 800 MG
     Route: 065
     Dates: start: 20180122
  11. PANITUMUMAB [Suspect]
     Active Substance: PANITUMUMAB
     Dosage: 570 MG
     Route: 042
     Dates: start: 20180725
  12. PANITUMUMAB [Suspect]
     Active Substance: PANITUMUMAB
     Dosage: 570 MG
     Route: 042
     Dates: start: 20180627
  13. METOPROLOL. [Concomitant]
     Active Substance: METOPROLOL
     Indication: ESSENTIAL HYPERTENSION
     Dosage: 95 MILLIGRAM DAILY;
     Route: 048
  14. IRINOTECAN [Suspect]
     Active Substance: IRINOTECAN
     Indication: COLORECTAL CANCER METASTATIC
     Dosage: 360 MG
     Route: 065
     Dates: start: 20180122
  15. RAMIPRIL BETA COMP [Concomitant]
     Indication: ESSENTIAL HYPERTENSION
     Dosage: 10 MILLIGRAM DAILY;
     Route: 048

REACTIONS (3)
  - Vomiting [Recovered/Resolved]
  - Nausea [Recovered/Resolved]
  - Diarrhoea [Recovered/Resolved]

NARRATIVE: CASE EVENT DATE: 20180731
